FAERS Safety Report 24637461 (Version 2)
Quarter: 2025Q3

REPORT INFORMATION
  Report Type: Spontaneous
  Country: US (occurrence: US)
  Receive Date: 20241119
  Receipt Date: 20250803
  Transmission Date: 20251020
  Serious: Yes (Death, Other)
  Sender: ALEXION PHARMACEUTICALS
  Company Number: US-SA-2024SA322220

PATIENT
  Age: 18 Month
  Sex: Male

DRUGS (5)
  1. BEYFORTUS [Suspect]
     Active Substance: NIRSEVIMAB-ALIP
     Route: 065
     Dates: start: 20241009, end: 20241009
  2. TACROLIMUS [Concomitant]
     Active Substance: TACROLIMUS
  3. SODIUM BICARBONATE [Concomitant]
     Active Substance: SODIUM BICARBONATE
  4. ASPIRIN [Concomitant]
     Active Substance: ASPIRIN
  5. RAPAMUNE [Concomitant]
     Active Substance: SIROLIMUS

REACTIONS (4)
  - Feeling abnormal [Fatal]
  - Feeling hot [Fatal]
  - Dyskinesia [Fatal]
  - Unresponsive to stimuli [Fatal]

NARRATIVE: CASE EVENT DATE: 20241009
